FAERS Safety Report 15110522 (Version 1)
Quarter: 2018Q3

REPORT INFORMATION
  Report Type: Spontaneous
  Country: CN (occurrence: CN)
  Receive Date: 20180705
  Receipt Date: 20180705
  Transmission Date: 20181010
  Serious: Yes (Hospitalization)
  Sender: FDA-Public Use
  Company Number: PHHY2018CN036327

PATIENT
  Age: 56 Year
  Sex: Male
  Weight: 60 kg

DRUGS (4)
  1. TEGRETAL [Suspect]
     Active Substance: CARBAMAZEPINE
     Indication: STATUS EPILEPTICUS
     Dosage: 0.2 DF, TID
     Route: 048
     Dates: start: 20180422, end: 20180512
  2. PIPERACILLIN SODIUM [Concomitant]
     Active Substance: PIPERACILLIN SODIUM
     Indication: LOWER RESPIRATORY TRACT INFECTION
     Dosage: 3 G, QD
     Route: 041
     Dates: start: 20180424, end: 20180503
  3. MYONAL [Concomitant]
     Active Substance: EPERISONE HYDROCHLORIDE
     Indication: STATUS EPILEPTICUS
     Dosage: 50 MG, QD
     Route: 048
     Dates: start: 20180422, end: 20180512
  4. OXIRACETAM [Concomitant]
     Active Substance: OXIRACETAM
     Indication: CEREBRAL INFARCTION
     Dosage: 20 ML, QD
     Route: 041
     Dates: start: 20180319, end: 20180331

REACTIONS (2)
  - Skin exfoliation [Recovering/Resolving]
  - Rash [Recovering/Resolving]

NARRATIVE: CASE EVENT DATE: 20180430
